FAERS Safety Report 23087595 (Version 1)
Quarter: 2023Q4

REPORT INFORMATION
  Report Type: Spontaneous
  Country: PT (occurrence: PT)
  Receive Date: 20231020
  Receipt Date: 20231020
  Transmission Date: 20240110
  Serious: Yes (Other)
  Sender: FDA-Public Use
  Company Number: None

PATIENT
  Age: 57 Year
  Sex: Male
  Weight: 60 kg

DRUGS (4)
  1. AUBAGIO [Suspect]
     Active Substance: TERIFLUNOMIDE
     Indication: Secondary progressive multiple sclerosis
     Dosage: 14 MG, QD
     Route: 048
     Dates: start: 20220506
  2. DAPAGLIFLOZIN [Concomitant]
     Active Substance: DAPAGLIFLOZIN
     Dosage: 1 TABLET AT LUNCH
     Route: 048
  3. PERINDOPRIL DURA PLUS [Concomitant]
     Dosage: 1 TABLET AT BREAKFAST (2.5 MG + 0.625 MG)
     Route: 048
  4. COLROSET [Concomitant]
     Dosage: 1 TABLET AT DINNER
     Route: 048

REACTIONS (4)
  - Hypertensive crisis [Recovered/Resolved]
  - Gait disturbance [Recovered/Resolved]
  - Dizziness [Recovered/Resolved]
  - Vision blurred [Recovered/Resolved]

NARRATIVE: CASE EVENT DATE: 20230722
